FAERS Safety Report 5374209-7 (Version None)
Quarter: 2007Q2

REPORT INFORMATION
  Report Type: 
  Country: None (occurrence: None)
  Receive Date: 20070627
  Receipt Date: 20060628
  Transmission Date: 20071010
  Serious: Yes (Hospitalization)
  Sender: FDA-Public Use
  Company Number: 453634

PATIENT
  Age: 84 Year
  Sex: Male
  Weight: 81.6 kg

DRUGS (5)
  1. XELODA [Suspect]
     Indication: DRUG USE FOR UNKNOWN INDICATION
     Dosage: 2500 MG DAILY ORAL
     Route: 048
     Dates: start: 20060112, end: 20060423
  2. LOMOTIL [Suspect]
     Indication: DIARRHOEA
  3. METOCLOPRAMIDE [Concomitant]
  4. 1 CONCOMITANT DRUG (GENERIC UNKNOWN) [Concomitant]
  5. HYZAAR [Concomitant]

REACTIONS (1)
  - CONSTIPATION [None]
